FAERS Safety Report 10599208 (Version 1)
Quarter: 2014Q4

REPORT INFORMATION
  Report Type: Spontaneous
  Country: US (occurrence: US)
  Receive Date: 20141121
  Receipt Date: 20141121
  Transmission Date: 20150529
  Serious: Yes (Other)
  Sender: FDA-Public Use
  Company Number: PHHY2014US150925

PATIENT
  Age: 20 Year
  Sex: Male

DRUGS (3)
  1. TOBRAMYCIN. [Suspect]
     Active Substance: TOBRAMYCIN
     Indication: ACINETOBACTER INFECTION
     Route: 042
  2. MEROPENEM. [Concomitant]
     Active Substance: MEROPENEM
     Indication: ACINETOBACTER INFECTION
     Route: 065
  3. VANCOMYCIN [Concomitant]
     Active Substance: VANCOMYCIN
     Indication: ACINETOBACTER INFECTION
     Route: 065

REACTIONS (2)
  - Drug resistance [Unknown]
  - Treatment failure [Unknown]
